FAERS Safety Report 4552443-3 (Version None)
Quarter: 2005Q1

REPORT INFORMATION
  Report Type: 
  Country: None (occurrence: None)
  Receive Date: 20050114
  Receipt Date: 20050111
  Transmission Date: 20050727
  Serious: Yes (Hospitalization, Other)
  Sender: FDA-Public Use
  Company Number: AU-BRISTOL-MYERS SQUIBB COMPANY-12820817

PATIENT
  Age: 59 Year
  Sex: Male

DRUGS (4)
  1. IFOSFAMIDE [Suspect]
     Indication: LYMPHOMA
     Dosage: INITIAL DOSE: 09-DEC-2004
     Dates: start: 20041209, end: 20041209
  2. GEMZAR [Suspect]
     Indication: LYMPHOMA
     Dates: start: 20041216, end: 20041216
  3. VINORELBINE [Suspect]
     Indication: LYMPHOMA
     Dosage: INITIAL DOSE: 09-DEC-2004
     Dates: start: 20041216, end: 20041216
  4. PEGFILGRASTIM [Suspect]
     Indication: LYMPHOMA
     Dates: start: 20041217, end: 20041217

REACTIONS (2)
  - FEBRILE NEUTROPENIA [None]
  - THROMBOPHLEBITIS [None]
